FAERS Safety Report 18096704 (Version 1)
Quarter: 2020Q3

REPORT INFORMATION
  Report Type: Spontaneous
  Country: DE (occurrence: US)
  Receive Date: 20200731
  Receipt Date: 20200731
  Transmission Date: 20201103
  Serious: Yes (Hospitalization, Other)
  Sender: FDA-Public Use
  Company Number: DE-TEVA-2020-DE-1807125

PATIENT
  Age: 49 Year
  Sex: Female
  Weight: 106.98 kg

DRUGS (15)
  1. MIRTAZAPIN RATIOPHARM [Concomitant]
     Indication: DEPRESSION
     Dosage: UNK
     Dates: start: 20180515
  2. XGEVA [Suspect]
     Active Substance: DENOSUMAB
     Indication: METASTASES TO BONE
     Dosage: UNK
     Route: 058
     Dates: start: 20160830
  3. L?THYROXIN HENNING [Concomitant]
     Active Substance: LEVOTHYROXINE SODIUM
     Indication: HYPOTHYROIDISM
     Dosage: UNK
     Dates: start: 20160718
  4. RIVAROXABAN [Concomitant]
     Active Substance: RIVAROXABAN
     Indication: HYPERCOAGULATION
     Dosage: UNK
     Dates: start: 20160804
  5. CIPROBAY [CIPROFLOXACIN] [Concomitant]
     Indication: NAIL BED INFLAMMATION
     Dosage: UNK
     Dates: start: 20181011, end: 20181017
  6. NOVALGIN (METAMIZOLE SODIUM) [Concomitant]
     Active Substance: METAMIZOLE SODIUM
     Indication: METASTASES TO BONE
     Dosage: UNK
     Dates: start: 20171130, end: 20180319
  7. GLAUPAX [Concomitant]
     Active Substance: ACETAZOLAMIDE
     Indication: CATARACT
     Dosage: UNK
     Dates: start: 20200220
  8. PALBOCICLIB [Suspect]
     Active Substance: PALBOCICLIB
     Indication: BREAST CANCER
     Dosage: 125 MILLIGRAM DAILY;
     Route: 048
     Dates: start: 20171215
  9. ORTOTON [METHOCARBAMOL] [Concomitant]
     Active Substance: METHOCARBAMOL
     Indication: METASTASES TO BONE
     Dosage: UNK
     Dates: start: 20180111, end: 20180319
  10. PANTOPRAZOL [PANTOPRAZOLE] [Concomitant]
     Active Substance: PANTOPRAZOLE
     Indication: PROPHYLAXIS
     Dosage: UNK
     Dates: start: 20171130
  11. FULVESTRANT. [Suspect]
     Active Substance: FULVESTRANT
     Indication: BREAST CANCER
     Dosage: UNK
     Route: 030
     Dates: start: 20171215
  12. MELOXICAM. [Concomitant]
     Active Substance: MELOXICAM
     Indication: MUSCULOSKELETAL PAIN
     Dosage: UNK
     Dates: start: 20190514
  13. VITAMIN D [COLECALCIFEROL] [Concomitant]
     Active Substance: CHOLECALCIFEROL
     Indication: DEPRESSION
     Dosage: UNK
     Dates: start: 20171130
  14. MIRTAZAPIN RATIOPHARM [Concomitant]
     Dosage: UNK
     Dates: start: 20170725, end: 20180514
  15. ELONTRIL [Concomitant]
     Active Substance: BUPROPION HYDROCHLORIDE
     Indication: DEPRESSION
     Dosage: UNK
     Dates: start: 20180319, end: 20191005

REACTIONS (1)
  - Osteonecrosis of jaw [Recovered/Resolved]
